FAERS Safety Report 9846756 (Version 1)
Quarter: 2014Q1

REPORT INFORMATION
  Report Type: Spontaneous
  Country: LB (occurrence: LB)
  Receive Date: 20140127
  Receipt Date: 20140127
  Transmission Date: 20141002
  Serious: Yes (Hospitalization)
  Sender: FDA-Public Use
  Company Number: LB-ROXANE LABORATORIES, INC.-2014-RO-00084RO

PATIENT
  Age: 31 Year
  Sex: Male

DRUGS (3)
  1. QUETIAPINE FUMARATE [Suspect]
     Indication: BIPOLAR I DISORDER
     Dosage: 200 MG
  2. LITHIUM CARBONATE [Suspect]
     Indication: BIPOLAR I DISORDER
     Dosage: 800 MG
  3. VALPROIC ACID [Suspect]
     Indication: BIPOLAR I DISORDER
     Dosage: 1500 MG

REACTIONS (1)
  - Hyperammonaemia [Recovered/Resolved]
